FAERS Safety Report 24080980 (Version 2)
Quarter: 2024Q3

REPORT INFORMATION
  Report Type: Spontaneous
  Country: US (occurrence: US)
  Receive Date: 20240711
  Receipt Date: 20240722
  Transmission Date: 20241017
  Serious: Yes (Hospitalization, Other)
  Sender: ABBVIE
  Company Number: US-ABBVIE-5834434

PATIENT
  Sex: Male

DRUGS (8)
  1. HUMIRA [Suspect]
     Active Substance: ADALIMUMAB
     Indication: Crohn^s disease
     Dosage: FORM STRENGTH: 40 MILLIGRAM
     Route: 058
     Dates: start: 2004
  2. VITAMIN B12 [Concomitant]
     Active Substance: CYANOCOBALAMIN
     Indication: Vitamin supplementation
  3. LIPITOR [Concomitant]
     Active Substance: ATORVASTATIN CALCIUM
     Indication: Atherosclerosis prophylaxis
  4. TYLENOL [Concomitant]
     Active Substance: ACETAMINOPHEN
     Indication: Pain
     Dosage: TIME INTERVAL: AS NECESSARY
  5. METOPROLOL [Concomitant]
     Active Substance: METOPROLOL
     Indication: Hypertension
  6. PROTONIX [Concomitant]
     Active Substance: PANTOPRAZOLE SODIUM
     Indication: Antacid therapy
  7. JANUVIA [Concomitant]
     Active Substance: SITAGLIPTIN PHOSPHATE
     Indication: Prophylaxis
  8. ASPIRIN [Concomitant]
     Active Substance: ASPIRIN
     Indication: Postoperative care
     Dosage: FORM STRENGTH: 81 MILLIGRAM

REACTIONS (3)
  - Pneumonia [Recovered/Resolved]
  - Arteriosclerosis [Recovering/Resolving]
  - Stent placement [Recovering/Resolving]

NARRATIVE: CASE EVENT DATE: 20170101
